FAERS Safety Report 15574976 (Version 3)
Quarter: 2018Q4

REPORT INFORMATION
  Report Type: Spontaneous
  Country: FR (occurrence: FR)
  Receive Date: 20181101
  Receipt Date: 20181121
  Transmission Date: 20190205
  Serious: Yes (Death, Hospitalization, Other)
  Sender: FDA-Public Use
  Company Number: FR-009507513-1810FRA013133

PATIENT
  Age: 57 Year
  Sex: Male

DRUGS (12)
  1. LOXEN [NICARDIPINE HYDROCHLORIDE] [Concomitant]
     Active Substance: NICARDIPINE HYDROCHLORIDE
     Indication: HYPERTENSION
     Dosage: 50 MILLIGRAM, QD
     Route: 048
     Dates: start: 20110916, end: 201611
  2. KARDEGIC [Concomitant]
     Active Substance: ASPIRIN DL-LYSINE
     Indication: PLATELET AGGREGATION INHIBITION
     Dosage: 75 MILLIGRAM, QD
     Route: 048
     Dates: start: 201401, end: 20161113
  3. INIPOMP [Concomitant]
     Active Substance: PANTOPRAZOLE SODIUM
     Indication: ANTACID THERAPY
     Dosage: 40 MILLIGRAM, QD
     Route: 048
     Dates: start: 20140131, end: 20161114
  4. TEMERIT [Concomitant]
     Active Substance: NEBIVOLOL
     Indication: HYPERTENSION
     Dosage: 1.5 DOSAGE FORM (7.5 MG), QD
     Route: 048
     Dates: start: 20140131, end: 20161114
  5. LASILIX [Concomitant]
     Active Substance: FUROSEMIDE
     Indication: POLYURIA
     Dosage: 0.5 DOSAGE FORM (250 MG), QD
     Route: 048
     Dates: start: 20110115, end: 20161113
  6. OROCAL [Concomitant]
     Indication: CALCIUM DEFICIENCY
     Dosage: 2 DOSAGE FORM (1000 MG), QD
     Route: 048
     Dates: start: 20121123, end: 20161113
  7. LANTUS [Concomitant]
     Active Substance: INSULIN GLARGINE
     Indication: TYPE 2 DIABETES MELLITUS
     Dosage: 1 DOSAGE FORM, QD
     Dates: start: 1999, end: 20161114
  8. SOLUPRED [PREDNISOLONE METASULFOBENZOATE SODIUM] [Concomitant]
     Active Substance: PREDNISOLONE SODIUM METAZOATE
     Dosage: 20 MILLIGRAM, QD
     Dates: start: 20150418, end: 20161114
  9. NEUROTIN (ACETYLCARNITINE HYDROCHLORIDE) [Concomitant]
     Active Substance: ACETYLCARNITINE HYDROCHLORIDE
     Indication: NEURALGIA
     Dosage: 1 DOSAGE FORM, QD
     Route: 048
     Dates: start: 20151218, end: 20161113
  10. KAYEXALATE [Concomitant]
     Active Substance: SODIUM POLYSTYRENE SULFONATE
     Indication: HYPERKALAEMIA
     Dosage: 1 DOSAGE FORM (454 G), QD
     Route: 048
     Dates: start: 2011, end: 201611
  11. ARAVA [Concomitant]
     Active Substance: LEFLUNOMIDE
     Indication: ANALGESIC THERAPY
     Dosage: 10 MILLIGRAM, QD
     Route: 048
     Dates: start: 20150202, end: 20161114
  12. ZEPATIER [Suspect]
     Active Substance: ELBASVIR\GRAZOPREVIR
     Indication: HEPATITIS C
     Dosage: 1 DOSAGE FORM, QD
     Route: 048
     Dates: start: 20161108, end: 201611

REACTIONS (3)
  - Septic shock [Fatal]
  - Diabetic foot [Unknown]
  - Catheter site infection [Unknown]

NARRATIVE: CASE EVENT DATE: 201611
